FAERS Safety Report 22193054 (Version 1)
Quarter: 2023Q2

REPORT INFORMATION
  Report Type: Spontaneous
  Country: US (occurrence: US)
  Receive Date: 20230410
  Receipt Date: 20230410
  Transmission Date: 20230722
  Serious: No
  Sender: FDA-Public Use
  Company Number: None

PATIENT
  Age: 92 Year
  Sex: Female

DRUGS (1)
  1. ZIOPTAN [Suspect]
     Active Substance: TAFLUPROST

REACTIONS (4)
  - Eye pain [Recovered/Resolved]
  - Swelling of eyelid [Recovered/Resolved]
  - Swollen tear duct [Recovered/Resolved]
  - Off label use [Recovered/Resolved]
